FAERS Safety Report 8393928-1 (Version None)
Quarter: 2012Q2

REPORT INFORMATION
  Report Type: 
  Country: None (occurrence: None)
  Receive Date: 20120516
  Receipt Date: 20120508
  Transmission Date: 20120825
  Serious: Yes (Hospitalization, Other)
  Sender: FDA-Public Use
  Company Number: 2012SP024355

PATIENT
  Age: 26 Year
  Sex: Female

DRUGS (5)
  1. AZATHIOPRINE [Concomitant]
  2. PREDNISONE TAB [Concomitant]
  3. ESCITALOPRAM [Concomitant]
  4. NUVARING [Suspect]
     Indication: CONTRACEPTION
     Dosage: VAG ; VAG
     Route: 067
     Dates: start: 20060101, end: 20100101
  5. NUVARING [Suspect]
     Indication: CONTRACEPTION
     Dosage: VAG ; VAG
     Route: 067
     Dates: start: 20110501, end: 20110701

REACTIONS (2)
  - ENCEPHALITIS [None]
  - HEMIPLEGIA [None]
